FAERS Safety Report 4314576-6 (Version None)
Quarter: 2004Q1

REPORT INFORMATION
  Report Type: 
  Country: None (occurrence: None)
  Receive Date: 20040308
  Receipt Date: 20040223
  Transmission Date: 20041129
  Serious: Yes (Disabling)
  Sender: FDA-Public Use
  Company Number: 2004AP01136

PATIENT
  Age: 68 Year
  Sex: Female

DRUGS (2)
  1. TAMOXIFEN CITRATE [Suspect]
     Indication: BREAST CANCER
     Dosage: 20 MG DAILY
  2. TAMOXIFEN CITRATE [Suspect]
     Indication: METASTASES TO CHEST WALL
     Dosage: 20 MG DAILY

REACTIONS (5)
  - BLINDNESS [None]
  - OPTIC ATROPHY [None]
  - OPTIC NEUROPATHY [None]
  - SCOTOMA [None]
  - VISUAL FIELD DEFECT [None]
